FAERS Safety Report 20591043 (Version 3)
Quarter: 2022Q2

REPORT INFORMATION
  Report Type: Report from Study
  Country: US (occurrence: US)
  Receive Date: 20220314
  Receipt Date: 20220507
  Transmission Date: 20220721
  Serious: Yes (Hospitalization, Other)
  Sender: FDA-Public Use
  Company Number: US-TAKEDA-2021TUS080924

PATIENT
  Sex: Female

DRUGS (4)
  1. MARIBAVIR [Suspect]
     Active Substance: MARIBAVIR
     Indication: Cytomegalovirus infection
     Dosage: 20 MILLIGRAM, BID
     Route: 048
     Dates: start: 20211211
  2. MARIBAVIR [Suspect]
     Active Substance: MARIBAVIR
     Dosage: 200 MILLIGRAM, BID
     Route: 048
     Dates: start: 20211211
  3. MARIBAVIR [Suspect]
     Active Substance: MARIBAVIR
     Dosage: 4 DOSAGE FORM, BID
     Route: 048
     Dates: start: 20211211
  4. MARIBAVIR [Suspect]
     Active Substance: MARIBAVIR
     Dosage: 2 DOSAGE FORM, BID
     Route: 048
     Dates: start: 20211211

REACTIONS (3)
  - Tuberculosis [Unknown]
  - Pyrexia [Unknown]
  - Sinusitis [Unknown]
